FAERS Safety Report 4274101-5 (Version None)
Quarter: 2004Q1

REPORT INFORMATION
  Report Type: 
  Country: None (occurrence: None)
  Receive Date: 20040120
  Receipt Date: 20031230
  Transmission Date: 20041129
  Serious: Yes (Other)
  Sender: FDA-Public Use
  Company Number: DE-GLAXOSMITHKLINE-B0318204B

PATIENT
  Age: 57 Year
  Sex: Male
  Weight: 110 kg

DRUGS (4)
  1. ROSIGLITAZONE MALEATE [Suspect]
     Indication: DIABETES MELLITUS NON-INSULIN-DEPENDENT
     Dosage: 4MG PER DAY
     Route: 048
     Dates: start: 20011219, end: 20030618
  2. GLYBURIDE [Concomitant]
     Indication: DIABETES MELLITUS NON-INSULIN-DEPENDENT
     Dosage: 10.5MG PER DAY
     Route: 048
     Dates: start: 19970101
  3. NITRENDIPIN [Concomitant]
     Dosage: 30MG PER DAY
     Dates: start: 19910101
  4. HCT [Concomitant]
     Dosage: 50MG PER DAY
     Dates: start: 19910101

REACTIONS (3)
  - ATRIAL FIBRILLATION [None]
  - COLON CANCER [None]
  - INTESTINAL HAEMORRHAGE [None]
